FAERS Safety Report 5766836-X (Version None)
Quarter: 2008Q2

REPORT INFORMATION
  Report Type: 
  Country: None (occurrence: None)
  Receive Date: 20080609
  Receipt Date: 20080603
  Transmission Date: 20081010
  Serious: Yes (Death, Hospitalization)
  Sender: FDA-Public Use
  Company Number: 2008SP009046

PATIENT
  Age: 74 Year
  Sex: Male
  Weight: 63 kg

DRUGS (6)
  1. TEMODAL [Suspect]
     Indication: GLIOBLASTOMA
     Dosage: 120 MG,QD;PO
     Route: 048
     Dates: start: 20080204, end: 20080316
  2. ZONISAMIDE [Suspect]
     Indication: CONVULSION PROPHYLAXIS
     Dosage: 200 MG,BID;PO
     Route: 048
     Dates: start: 20080107, end: 20080411
  3. NORVASC [Concomitant]
  4. BLOPRESS [Concomitant]
  5. MAGMITT [Concomitant]
  6. SULFAMETHOXAZOLE AND TRIMETHOPRIM [Concomitant]

REACTIONS (8)
  - ANAEMIA [None]
  - BONE MARROW FAILURE [None]
  - INTRACRANIAL TUMOUR HAEMORRHAGE [None]
  - JAPAN COMA SCALE ABNORMAL [None]
  - LEUKOPENIA [None]
  - MYDRIASIS [None]
  - PYREXIA [None]
  - THROMBOCYTOPENIA [None]
